FAERS Safety Report 9870707 (Version 2)
Quarter: 2014Q1

REPORT INFORMATION
  Report Type: Spontaneous
  Country: CL (occurrence: CL)
  Receive Date: 20140205
  Receipt Date: 20140205
  Transmission Date: 20141002
  Serious: Yes (Hospitalization)
  Sender: FDA-Public Use
  Company Number: CL-BIOMARINAP-CL-2013-102451

PATIENT
  Sex: Female
  Weight: 17 kg

DRUGS (3)
  1. NAGLAZYME [Suspect]
     Indication: MUCOPOLYSACCHARIDOSIS VI
     Dosage: 20 MG, QW
     Route: 041
     Dates: start: 20130807
  2. PREDNISONE [Concomitant]
     Indication: BRONCHITIS
  3. SALBUTAMOL [Concomitant]
     Indication: BRONCHITIS

REACTIONS (2)
  - Pneumonia bacterial [Recovering/Resolving]
  - Asthma [Recovering/Resolving]
